FAERS Safety Report 8078318-3 (Version None)
Quarter: 2012Q1

REPORT INFORMATION
  Report Type: 
  Country: None (occurrence: None)
  Receive Date: 20120123
  Receipt Date: 20120117
  Transmission Date: 20120608
  Serious: Yes (Hospitalization)
  Sender: FDA-Public Use
  Company Number: 1000023083

PATIENT
  Age: 67 Year
  Sex: Male

DRUGS (8)
  1. OMEPRAZOLE [Suspect]
     Indication: PROPHYLAXIS
     Dosage: 20 MG (20 MG, 1 IN 24 HR), 40 MG (40 MG, 1 IN 1 D), 40 MG (40 MG, MONDAY, WEDNESDAY, FRIDAY AND SUND
     Dates: end: 20100101
  2. OMEPRAZOLE [Suspect]
     Indication: OESOPHAGITIS
     Dosage: 20 MG (20 MG, 1 IN 24 HR), 40 MG (40 MG, 1 IN 1 D), 40 MG (40 MG, MONDAY, WEDNESDAY, FRIDAY AND SUND
     Dates: end: 20100101
  3. OMEPRAZOLE [Suspect]
     Indication: PROPHYLAXIS
     Dosage: 20 MG (20 MG, 1 IN 24 HR), 40 MG (40 MG, 1 IN 1 D), 40 MG (40 MG, MONDAY, WEDNESDAY, FRIDAY AND SUND
     Dates: start: 20100101
  4. OMEPRAZOLE [Suspect]
     Indication: OESOPHAGITIS
     Dosage: 20 MG (20 MG, 1 IN 24 HR), 40 MG (40 MG, 1 IN 1 D), 40 MG (40 MG, MONDAY, WEDNESDAY, FRIDAY AND SUND
     Dates: start: 20100101
  5. LOSARTAN (LOSARTAN-) (LOSARTAN) [Concomitant]
  6. DILTIAZEM HYDROCHLORIDE [Suspect]
  7. ASPIRIN [Concomitant]
  8. SALMETEROL/FLUTICASONE PROPIONATE (SALMETEROL, FLUTICASONE PROPIONATE) [Concomitant]

REACTIONS (1)
  - NO ADVERSE EVENT [None]
